FAERS Safety Report 17763621 (Version 1)
Quarter: 2020Q2

REPORT INFORMATION
  Report Type: Spontaneous
  Country: US (occurrence: US)
  Receive Date: 20200509
  Receipt Date: 20200509
  Transmission Date: 20200714
  Serious: Yes (Death, Other)
  Sender: FDA-Public Use
  Company Number: US-TEVA-2020-US-1233053

PATIENT
  Sex: Male

DRUGS (1)
  1. TRAMADOL. [Suspect]
     Active Substance: TRAMADOL
     Dosage: 10 DOSAGE FORMS DAILY; DOSE: :10 PILLS/DAY, 300 MG,
     Route: 065

REACTIONS (5)
  - Drug abuse [Fatal]
  - Overdose [Fatal]
  - Bladder dysfunction [Unknown]
  - Bladder disorder [Unknown]
  - Loss of consciousness [Unknown]
